FAERS Safety Report 8485109 (Version 10)
Quarter: 2014Q1

REPORT INFORMATION
  Report Type: Report from Study
  Country: DE (occurrence: DE)
  Receive Date: 20120330
  Receipt Date: 20140319
  Transmission Date: 20141002
  Serious: Yes (Death, Hospitalization, Other)
  Sender: FDA-Public Use
  Company Number: DE-UCBSA-054126

PATIENT
  Age: 71 Year
  Sex: Female
  Weight: 112 kg

DRUGS (17)
  1. CERTOLIZUMAB PEGOL [Suspect]
     Indication: RHEUMATOID ARTHRITIS
     Dosage: NO OF DOSES RECEIVED: 50
     Route: 058
     Dates: start: 20100114
  2. PREDNISOLONE [Concomitant]
     Indication: RHEUMATOID ARTHRITIS
     Route: 048
     Dates: start: 19940223, end: 20120130
  3. PREDNISOLONE [Concomitant]
     Indication: RHEUMATOID ARTHRITIS
     Dosage: 5 MG AS NEEDED
     Route: 048
     Dates: start: 1993, end: 20120327
  4. AZATHIOPRINE [Concomitant]
     Indication: RHEUMATOID ARTHRITIS
     Route: 048
     Dates: start: 200610, end: 200809
  5. AZATHIOPRINE [Concomitant]
     Indication: RHEUMATOID ARTHRITIS
     Route: 048
     Dates: start: 200902, end: 201202
  6. AZATHIOPRINE [Concomitant]
     Indication: RHEUMATOID ARTHRITIS
     Route: 048
     Dates: start: 19941121, end: 20120327
  7. AZATHIOPRINE [Concomitant]
     Indication: RHEUMATOID ARTHRITIS
     Dosage: 100 MG
  8. AZATHIOPRINE [Concomitant]
     Indication: RHEUMATOID ARTHRITIS
     Dosage: 10 MG
  9. AZATHIOPRINE [Concomitant]
     Indication: RHEUMATOID ARTHRITIS
     Dosage: 100 MG
  10. NOVAMINSULFON [Concomitant]
     Indication: RHEUMATOID ARTHRITIS
     Route: 048
     Dates: start: 20090212, end: 20120130
  11. NOVAMINSULFON [Concomitant]
     Indication: POLYARTHRITIS
     Route: 048
     Dates: start: 20090212, end: 20120130
  12. NOVAMINSULFON [Concomitant]
     Indication: DIABETIC NEUROPATHY
     Route: 048
     Dates: start: 20090212, end: 20120130
  13. NOVAMINSULFON [Concomitant]
     Indication: RHEUMATOID ARTHRITIS
     Route: 048
     Dates: start: 20090106
  14. NOVAMINSULFON [Concomitant]
     Indication: POLYARTHRITIS
     Route: 048
     Dates: start: 20090106
  15. NOVAMINSULFON [Concomitant]
     Indication: DIABETIC NEUROPATHY
     Route: 048
     Dates: start: 20090106
  16. LYRICA [Concomitant]
     Indication: DIABETIC NEUROPATHY
     Dosage: 1-0-2
  17. MIRTAZEPIN [Concomitant]
     Indication: DIABETIC NEUROPATHY
     Dosage: 0-0-0-1

REACTIONS (4)
  - Metastases to central nervous system [Fatal]
  - Myocardial infarction [Fatal]
  - Cerebral toxoplasmosis [Fatal]
  - Diabetes mellitus [Recovered/Resolved]
